FAERS Safety Report 17847674 (Version 1)
Quarter: 2020Q2

REPORT INFORMATION
  Report Type: Report from Study
  Country: AU (occurrence: AU)
  Receive Date: 20200601
  Receipt Date: 20200601
  Transmission Date: 20200714
  Serious: Yes (Other)
  Sender: FDA-Public Use
  Company Number: AU-JNJFOC-20200529336

PATIENT
  Sex: Female

DRUGS (1)
  1. STELARA [Suspect]
     Active Substance: USTEKINUMAB
     Indication: CROHN^S DISEASE
     Route: 042
     Dates: start: 20200328

REACTIONS (5)
  - Anal abscess [Recovering/Resolving]
  - Vomiting [Recovering/Resolving]
  - Weight decreased [Recovering/Resolving]
  - Hepatic steatosis [Recovering/Resolving]
  - Nausea [Recovering/Resolving]
